FAERS Safety Report 6748452-6 (Version None)
Quarter: 2010Q2

REPORT INFORMATION
  Report Type: 
  Country: None (occurrence: None)
  Receive Date: 20100527
  Receipt Date: 20100527
  Transmission Date: 20101027
  Serious: Yes (Other)
  Sender: FDA-Public Use
  Company Number: None

PATIENT

DRUGS (1)
  1. HEPARIN SODIUM [Suspect]
     Indication: THROMBOSIS PROPHYLAXIS
     Dosage: 5000 UNITS SUBCUTANEOUS  (DATES OF USE: SEVERAL OVER THE PAST YEAR)
     Route: 058

REACTIONS (1)
  - INJECTION SITE PAIN [None]
